FAERS Safety Report 13545242 (Version 1)
Quarter: 2017Q2

REPORT INFORMATION
  Report Type: Spontaneous
  Country: US (occurrence: US)
  Receive Date: 20170513
  Receipt Date: 20170513
  Transmission Date: 20170830
  Serious: Yes (Disabling)
  Sender: FDA-Public Use
  Company Number: None

PATIENT
  Age: 37 Year
  Sex: Male
  Weight: 111.6 kg

DRUGS (1)
  1. OLANZAPINE. [Suspect]
     Active Substance: OLANZAPINE
     Indication: SCHIZOPHRENIA
     Dates: start: 20151101, end: 20170513

REACTIONS (6)
  - Gastrooesophageal reflux disease [None]
  - Abdominal pain upper [None]
  - Regurgitation [None]
  - Urticaria chronic [None]
  - Gastric disorder [None]
  - Vomiting [None]

NARRATIVE: CASE EVENT DATE: 20151101
